FAERS Safety Report 10659772 (Version 4)
Quarter: 2015Q1

REPORT INFORMATION
  Report Type: Spontaneous
  Country: DK (occurrence: JP)
  Receive Date: 20141217
  Receipt Date: 20150129
  Transmission Date: 20150720
  Serious: Yes (Hospitalization)
  Sender: FDA-Public Use
  Company Number: JP-FRI-1000073108

PATIENT
  Age: 84 Year
  Sex: Female
  Weight: 40 kg

DRUGS (17)
  1. MILLIS [Concomitant]
     Indication: ANGINA PECTORIS
     Dosage: 5 MG
     Route: 062
     Dates: start: 20141015
  2. LASIX [Concomitant]
     Active Substance: FUROSEMIDE
     Indication: CARDIAC FAILURE CONGESTIVE
     Dosage: 20 MG
     Route: 048
     Dates: start: 20131101
  3. PLETAAL OD [Concomitant]
     Active Substance: CILOSTAZOL
     Indication: SUBCLAVIAN ARTERY OCCLUSION
     Dosage: 100 MG
     Route: 048
     Dates: start: 20101015
  4. EDIROL [Concomitant]
     Active Substance: ELDECALCITOL
     Indication: IRON DEFICIENCY ANAEMIA
     Dosage: 0.75 MCG
     Route: 048
     Dates: start: 20120702
  5. CALONAL [Interacting]
     Active Substance: ACETAMINOPHEN
     Indication: BACK PAIN
     Dosage: 1200 MG
     Route: 048
     Dates: start: 20141128, end: 20141205
  6. FOSAMAC 35MG [Concomitant]
     Indication: OSTEOPOROSIS
     Route: 048
     Dates: start: 20101015
  7. AMLODIN [Concomitant]
     Active Substance: AMLODIPINE BESYLATE
     Indication: HYPERTENSION
     Dosage: 10 MG
     Route: 048
     Dates: start: 20140328
  8. PARIET [Concomitant]
     Active Substance: RABEPRAZOLE SODIUM
     Indication: GASTRIC ULCER
     Dosage: 10 MG
     Route: 048
     Dates: start: 20140328
  9. INCREMIN [Concomitant]
     Indication: IRON DEFICIENCY ANAEMIA
     Dosage: 5 ML
     Dates: start: 20111226
  10. LEXAPRO [Suspect]
     Active Substance: ESCITALOPRAM OXALATE
     Indication: DEPRESSION
     Dosage: 10 MG
     Route: 048
     Dates: start: 20141101, end: 20141207
  11. LOXONIN [Interacting]
     Active Substance: LOXOPROFEN SODIUM
     Indication: BACK PAIN
     Dosage: 50 MG
     Route: 062
     Dates: start: 20101015
  12. HALCION [Concomitant]
     Active Substance: TRIAZOLAM
     Indication: INSOMNIA
     Dosage: 0.25 MG
     Route: 048
     Dates: start: 20101015
  13. MAGLAX [Concomitant]
     Active Substance: MAGNESIUM OXIDE
     Indication: CONSTIPATION
     Dosage: 1000 MG
     Route: 048
     Dates: start: 20101015
  14. TSUMURA BUKURYOINGOHANGEKOBOKUTO EXTRACT GRANULES FOR ETHICAL USE [Concomitant]
     Indication: ANXIETY DISORDER
     Dosage: 5 GRAM
     Route: 048
     Dates: start: 20141024
  15. WARFARIN [Interacting]
     Active Substance: WARFARIN
     Indication: ATRIAL FIBRILLATION
     Dosage: 2.25 MG
     Route: 048
     Dates: start: 20090313, end: 20141207
  16. METHYCOBAL [Concomitant]
     Active Substance: METHYLCOBALAMIN
     Indication: NEUROPATHY PERIPHERAL
     Dosage: 1000 MCG
     Route: 048
     Dates: start: 20110815
  17. WYPAX [Concomitant]
     Active Substance: LORAZEPAM
     Indication: ANXIETY DISORDER
     Dosage: 1 MG
     Route: 048
     Dates: start: 20130920

REACTIONS (3)
  - Prothrombin time prolonged [Unknown]
  - Drug interaction [Unknown]
  - Gastrointestinal haemorrhage [Unknown]

NARRATIVE: CASE EVENT DATE: 20141205
